FAERS Safety Report 5395300-5 (Version None)
Quarter: 2007Q3

REPORT INFORMATION
  Report Type: 
  Country: None (occurrence: None)
  Receive Date: 20070724
  Receipt Date: 20070719
  Transmission Date: 20080115
  Serious: Yes (Life-Threatening)
  Sender: FDA-Public Use
  Company Number: CH-ASTRAZENECA-2007PK01512

PATIENT
  Age: 72 Year
  Sex: Male

DRUGS (5)
  1. SEROQUEL [Suspect]
     Indication: DEMENTIA OF THE ALZHEIMER'S TYPE, WITH DELIRIUM
     Route: 048
     Dates: start: 20070426, end: 20070427
  2. SEROQUEL [Interacting]
     Route: 048
     Dates: start: 20070428, end: 20070428
  3. SEROQUEL [Interacting]
     Route: 048
     Dates: start: 20070429
  4. HALDOL [Interacting]
     Route: 048
     Dates: start: 20070419, end: 20070425
  5. RIVOTRIL [Concomitant]
     Indication: DEMENTIA OF THE ALZHEIMER'S TYPE, WITH DELIRIUM
     Route: 048
     Dates: start: 20060101

REACTIONS (5)
  - AGITATION [None]
  - BLOOD CREATINE PHOSPHOKINASE INCREASED [None]
  - DRUG INTERACTION [None]
  - NEUROLEPTIC MALIGNANT SYNDROME [None]
  - PYREXIA [None]
